FAERS Safety Report 8825501 (Version 1)
Quarter: 2012Q4

REPORT INFORMATION
  Report Type: 
  Country: CN (occurrence: CN)
  Receive Date: 20121004
  Receipt Date: 20121004
  Transmission Date: 20130627
  Serious: Yes (Hospitalization)
  Sender: FDA-Public Use
  Company Number: CN-JNJFOC-20120912569

PATIENT
  Age: 58 Year
  Sex: Male

DRUGS (8)
  1. TYLENOL COLD [Suspect]
     Indication: NASOPHARYNGITIS
     Route: 048
     Dates: start: 20090601, end: 20090603
  2. TYLENOL COLD [Suspect]
     Indication: PYREXIA
     Route: 048
     Dates: start: 20090601, end: 20090603
  3. TYLENOL COLD [Suspect]
     Indication: UPPER RESPIRATORY TRACT INFECTION
     Route: 048
     Dates: start: 20090601, end: 20090603
  4. AMOXICILLIN [Suspect]
     Indication: UPPER RESPIRATORY TRACT INFECTION
     Route: 048
     Dates: start: 20090601, end: 20090603
  5. AMOXICILLIN [Suspect]
     Indication: NASOPHARYNGITIS
     Route: 048
     Dates: start: 20090601, end: 20090603
  6. AMOXICILLIN [Suspect]
     Indication: PYREXIA
     Route: 048
     Dates: start: 20090601, end: 20090603
  7. CLINDAMYCIN [Concomitant]
     Route: 041
  8. RIBAVIRIN [Concomitant]
     Route: 041

REACTIONS (1)
  - Rash generalised [Recovered/Resolved]
